FAERS Safety Report 17816346 (Version 1)
Quarter: 2020Q2

REPORT INFORMATION
  Report Type: Spontaneous
  Country: US (occurrence: US)
  Receive Date: 20200522
  Receipt Date: 20200522
  Transmission Date: 20200714
  Serious: Yes (Other)
  Sender: FDA-Public Use
  Company Number: US-009507513-2005USA006819

PATIENT
  Sex: Female

DRUGS (13)
  1. COREG [Suspect]
     Active Substance: CARVEDILOL
     Dosage: UNK
     Route: 048
     Dates: start: 20200517
  2. METFORMIN HYDROCHLORIDE. [Suspect]
     Active Substance: METFORMIN HYDROCHLORIDE
     Dosage: UNK
     Route: 048
  3. KEYTRUDA [Suspect]
     Active Substance: PEMBROLIZUMAB
     Dosage: 100 MG/4 ML VIAL
  4. HUMULIN 70/30 [Suspect]
     Active Substance: INSULIN HUMAN
     Dosage: 70-30/ML VIAL
  5. LENVATINIB MESYLATE [Suspect]
     Active Substance: LENVATINIB MESYLATE
     Indication: ENDOMETRIAL NEOPLASM
     Dosage: 20 MG (2X10 MG), DAILY (5 DAY PACK)
     Route: 048
  6. PRAVASTATIN SODIUM. [Suspect]
     Active Substance: PRAVASTATIN SODIUM
     Dosage: UNK
     Route: 048
  7. PYRIDOXINE [Suspect]
     Active Substance: PYRIDOXINE
     Dosage: UNK
     Route: 048
  8. TYLENOL [Suspect]
     Active Substance: ACETAMINOPHEN
     Dosage: UNK
     Route: 048
  9. COMPAZINE [Suspect]
     Active Substance: PROCHLORPERAZINE MALEATE
     Dosage: UNK
     Route: 048
  10. NORVASC [Suspect]
     Active Substance: AMLODIPINE BESYLATE
     Dosage: UNK
     Route: 048
  11. ZOFRAN [Suspect]
     Active Substance: ONDANSETRON HYDROCHLORIDE
     Dosage: UNK
     Route: 048
  12. BENADRYL [Suspect]
     Active Substance: DIPHENHYDRAMINE HYDROCHLORIDE
     Dosage: UNK
  13. MEGACE ES [Suspect]
     Active Substance: MEGESTROL ACETATE
     Dosage: 625 MG/5 ML

REACTIONS (4)
  - Amnesia [Unknown]
  - Neuropathy peripheral [Unknown]
  - Vertigo [Unknown]
  - Gait disturbance [Unknown]
